FAERS Safety Report 7679797-3 (Version None)
Quarter: 2011Q3

REPORT INFORMATION
  Report Type: 
  Country: None (occurrence: None)
  Receive Date: 20110812
  Receipt Date: 20110706
  Transmission Date: 20111222
  Serious: No
  Sender: FDA-Public Use
  Company Number: US-BAYER-2011-059881

PATIENT
  Age: 86 Year
  Sex: Male

DRUGS (2)
  1. ALEVE (CAPLET) [Suspect]
     Route: 048
  2. MELOXICAM [Concomitant]

REACTIONS (2)
  - BACK PAIN [None]
  - ABDOMINAL PAIN UPPER [None]
